FAERS Safety Report 8337966 (Version 5)
Quarter: 2013Q2

REPORT INFORMATION
  Report Type: Spontaneous
  Country: US (occurrence: US)
  Receive Date: 20120116
  Receipt Date: 20130503
  Transmission Date: 20140414
  Serious: Yes (Hospitalization)
  Sender: FDA-Public Use
  Company Number: US-GLAXOSMITHKLINE-A0961222A

PATIENT
  Age: 59 Year
  Sex: Male
  Weight: 114.5 kg

DRUGS (1)
  1. AVANDIA [Suspect]
     Indication: TYPE 2 DIABETES MELLITUS
     Route: 048
     Dates: start: 200512, end: 200806

REACTIONS (14)
  - Cerebrovascular accident [Not Recovered/Not Resolved]
  - Eye haemorrhage [Unknown]
  - Cardiac failure congestive [Unknown]
  - Transient ischaemic attack [Unknown]
  - Macular oedema [Unknown]
  - Chest discomfort [Unknown]
  - Pain [Unknown]
  - Blindness unilateral [Unknown]
  - Joint swelling [Unknown]
  - Hypoaesthesia [Unknown]
  - Fatigue [Unknown]
  - Erectile dysfunction [Unknown]
  - Myocardial infarction [Unknown]
  - Diabetic retinopathy [Unknown]
